FAERS Safety Report 6382914-9 (Version None)
Quarter: 2009Q3

REPORT INFORMATION
  Report Type: 
  Country: None (occurrence: None)
  Receive Date: 20090930
  Receipt Date: 20090916
  Transmission Date: 20100115
  Serious: Yes (Disabling)
  Sender: FDA-Public Use
  Company Number: PHHY2009GB39242

PATIENT
  Sex: Female

DRUGS (5)
  1. ACLASTA [Suspect]
     Indication: OSTEOPOROSIS
     Dosage: 5 MG, UNK
     Route: 042
     Dates: start: 20090501
  2. CALCIUM [Concomitant]
  3. VITAMIN D [Concomitant]
     Dosage: UNK
  4. OMEPRAZOLE [Concomitant]
  5. SENNA [Concomitant]
     Dosage: UNK

REACTIONS (5)
  - DYSGEUSIA [None]
  - MALAISE [None]
  - MYALGIA [None]
  - NAUSEA [None]
  - PAIN [None]
